FAERS Safety Report 10934881 (Version 1)
Quarter: 2015Q1

REPORT INFORMATION
  Report Type: Spontaneous
  Country: US (occurrence: US)
  Receive Date: 20150320
  Receipt Date: 20150320
  Transmission Date: 20150721
  Serious: No
  Sender: FDA-Public Use
  Company Number: US-009507513-1503USA006602

PATIENT
  Age: 68 Year
  Sex: Female
  Weight: 55.33 kg

DRUGS (3)
  1. BELSOMRA [Suspect]
     Active Substance: SUVOREXANT
     Indication: INSOMNIA
     Dosage: 10 MG, 30 MIN BEFORE GOING TO BED
     Route: 048
     Dates: start: 20150305, end: 20150305
  2. GABAPENTIN. [Concomitant]
     Active Substance: GABAPENTIN
     Indication: PAIN
     Dosage: UNK
  3. BELSOMRA [Suspect]
     Active Substance: SUVOREXANT
     Dosage: 10 MG, AT 1 AM
     Route: 048
     Dates: start: 20150306, end: 20150306

REACTIONS (4)
  - Feeling abnormal [Unknown]
  - Headache [Unknown]
  - Irregular sleep phase [Unknown]
  - Insomnia [Unknown]

NARRATIVE: CASE EVENT DATE: 201503
